FAERS Safety Report 12302041 (Version 2)
Quarter: 2016Q2

REPORT INFORMATION
  Report Type: Spontaneous
  Country: US (occurrence: US)
  Receive Date: 20160425
  Receipt Date: 20160519
  Transmission Date: 20160815
  Serious: No
  Sender: FDA-Public Use
  Company Number: US-PFIZER INC-2016188057

PATIENT
  Age: 70 Year
  Sex: Female

DRUGS (2)
  1. NEURONTIN [Suspect]
     Active Substance: GABAPENTIN
     Indication: PAIN
     Dosage: 200MG (CAPSULES)/ DAY, 7-8 HRS, (100 MG IN)
     Dates: start: 2014
  2. CLONAZEPAM. [Concomitant]
     Active Substance: CLONAZEPAM
     Dosage: 0.50 MG, EVERY 4-6 HRS

REACTIONS (8)
  - Faeces soft [Not Recovered/Not Resolved]
  - Tinnitus [Unknown]
  - Product use issue [Unknown]
  - Dizziness [Unknown]
  - Fatigue [Unknown]
  - Frequent bowel movements [Not Recovered/Not Resolved]
  - Condition aggravated [Unknown]
  - Migraine [Unknown]

NARRATIVE: CASE EVENT DATE: 2014
